FAERS Safety Report 8906587 (Version 2)
Quarter: 2013Q2

REPORT INFORMATION
  Report Type: Report from Study
  Country: US (occurrence: US)
  Receive Date: 20121114
  Receipt Date: 20130513
  Transmission Date: 20140414
  Serious: Yes (Hospitalization, Other)
  Sender: FDA-Public Use
  Company Number: US-JNJFOC-20121103681

PATIENT
  Sex: Female
  Weight: 68.04 kg

DRUGS (2)
  1. REMICADE [Suspect]
     Indication: CROHN^S DISEASE
     Route: 042
     Dates: start: 200509, end: 201206
  2. ACIPHEX [Concomitant]
     Route: 065

REACTIONS (3)
  - Ileostomy [Unknown]
  - Intestinal resection [Recovered/Resolved]
  - Tooth fracture [Not Recovered/Not Resolved]
